FAERS Safety Report 19980755 (Version 3)
Quarter: 2021Q4

REPORT INFORMATION
  Report Type: Spontaneous
  Country: IT (occurrence: IT)
  Receive Date: 20211021
  Receipt Date: 20211123
  Transmission Date: 20220303
  Serious: Yes (Other)
  Sender: FDA-Public Use
  Company Number: IT-SA-SAC20211015000653

PATIENT
  Age: 79 Year
  Sex: Female

DRUGS (1)
  1. RENVELA [Suspect]
     Active Substance: SEVELAMER CARBONATE
     Indication: Renal failure
     Dosage: 800 MG, TID, FOR 8 DAYS
     Route: 048
     Dates: start: 202110, end: 20211012

REACTIONS (6)
  - Haematochezia [Not Recovered/Not Resolved]
  - Intestinal haemorrhage [Recovering/Resolving]
  - Bone pain [Recovering/Resolving]
  - Confusional state [Not Recovered/Not Resolved]
  - Head discomfort [Not Recovered/Not Resolved]
  - Blood calcium increased [Unknown]

NARRATIVE: CASE EVENT DATE: 20211001
